FAERS Safety Report 17727627 (Version 1)
Quarter: 2020Q2

REPORT INFORMATION
  Report Type: Spontaneous
  Country: US (occurrence: US)
  Receive Date: 20200429
  Receipt Date: 20200429
  Transmission Date: 20200714
  Serious: Yes (Other)
  Sender: FDA-Public Use
  Company Number: None

PATIENT
  Age: 55 Year
  Sex: Female
  Weight: 177.81 kg

DRUGS (13)
  1. RANITIDINE 150MG TAB AMN [Suspect]
     Active Substance: RANITIDINE
     Indication: GASTROOESOPHAGEAL REFLUX DISEASE
     Dosage: ?          QUANTITY:1 PILL;?
     Route: 048
     Dates: start: 20060405, end: 20191116
  2. IRON PILL [Concomitant]
     Active Substance: IRON
  3. LISINOPRIL. [Concomitant]
     Active Substance: LISINOPRIL
  4. NAPROXEN. [Concomitant]
     Active Substance: NAPROXEN
  5. TYLONOL [Concomitant]
  6. NOVALIN R NOVALIN-ALBUTRERAL INHALATION SOLUTION [Concomitant]
  7. CPAP MACHINE [Concomitant]
  8. NEBULIZER [Concomitant]
     Active Substance: DEVICE
  9. ATROVASTIN [Concomitant]
  10. TRAMADOL. [Concomitant]
     Active Substance: TRAMADOL
  11. IRON [Concomitant]
     Active Substance: IRON
  12. OXYGEN MACHINE [Concomitant]
  13. WARFARIN [Concomitant]
     Active Substance: WARFARIN

REACTIONS (2)
  - Haemorrhoids [None]
  - Constipation [None]

NARRATIVE: CASE EVENT DATE: 20191211
